FAERS Safety Report 13627769 (Version 2)
Quarter: 2017Q3

REPORT INFORMATION
  Report Type: Spontaneous
  Country: ZA (occurrence: ZA)
  Receive Date: 20170607
  Receipt Date: 20170706
  Transmission Date: 20171127
  Serious: Yes (Hospitalization)
  Sender: FDA-Public Use
  Company Number: PHHY2017ZA081874

PATIENT
  Age: 72 Year
  Sex: Female

DRUGS (6)
  1. CALCIFEROL [Suspect]
     Active Substance: ERGOCALCIFEROL
     Indication: VITAMIN D DECREASED
     Dosage: UNK, WEEKLY
     Route: 048
     Dates: start: 20121009
  2. PULMISON [Concomitant]
     Active Substance: PREDNISONE
     Indication: PRODUCT USED FOR UNKNOWN INDICATION
     Dosage: 20 MG, QD (DAILY FOR 3 DAYS)
     Route: 065
  3. SYMBICORD [Suspect]
     Active Substance: BUDESONIDE\FORMOTEROL
     Indication: ASTHMA
     Dosage: UNK UNK, BID
     Route: 055
     Dates: start: 20170221
  4. ACLASTA [Suspect]
     Active Substance: ZOLEDRONIC ACID
     Indication: PRODUCT USED FOR UNKNOWN INDICATION
     Dosage: UNK
     Route: 041
     Dates: start: 20170530
  5. PANAMOR [Concomitant]
     Active Substance: DICLOFENAC SODIUM
     Indication: PRODUCT USED FOR UNKNOWN INDICATION
     Dosage: 100 MG, QD (DAILY FOR 3 DAYS)
     Route: 065
  6. OMEZ INSTA [Concomitant]
     Indication: PRODUCT USED FOR UNKNOWN INDICATION
     Dosage: 20 MG, QD (DAILY FOR 3 DAYS)
     Route: 065

REACTIONS (12)
  - Dysstasia [Recovered/Resolved]
  - C-reactive protein increased [Unknown]
  - Back pain [Recovered/Resolved]
  - Pain in extremity [Recovered/Resolved]
  - Pyrexia [Unknown]
  - Lymphocyte count decreased [Unknown]
  - Blood phosphorus decreased [Unknown]
  - Movement disorder [Unknown]
  - Neutrophil count increased [Unknown]
  - Neck pain [Unknown]
  - White blood cell count increased [Unknown]
  - Vomiting [Recovered/Resolved]

NARRATIVE: CASE EVENT DATE: 20170531
